FAERS Safety Report 5349878-8 (Version None)
Quarter: 2007Q2

REPORT INFORMATION
  Report Type: 
  Country: None (occurrence: None)
  Receive Date: 20070607
  Receipt Date: 20070530
  Transmission Date: 20071010
  Serious: Yes (Other)
  Sender: FDA-Public Use
  Company Number: US-PFIZER INC-2007020083

PATIENT
  Sex: Male
  Weight: 81.6 kg

DRUGS (16)
  1. CHANTIX [Suspect]
     Indication: SMOKING CESSATION THERAPY
     Route: 048
  2. NICOTROL [Suspect]
     Indication: SMOKING CESSATION THERAPY
     Route: 055
  3. OXYCONTIN [Concomitant]
     Indication: BACK PAIN
  4. CRESTOR [Concomitant]
  5. ACETYLSALICYLIC ACID SRT [Concomitant]
  6. ACTOS [Concomitant]
  7. LASIX [Concomitant]
  8. REGLAN [Concomitant]
  9. PRILOSEC [Concomitant]
  10. VALSARTAN [Concomitant]
  11. COREG [Concomitant]
  12. TAMSULOSIN HCL [Concomitant]
  13. TIGAN [Concomitant]
  14. DESYREL [Concomitant]
  15. RESTORIL [Concomitant]
  16. NEURONTIN [Concomitant]

REACTIONS (4)
  - DRUG INEFFECTIVE [None]
  - DYSGEUSIA [None]
  - NAUSEA [None]
  - STRESS [None]
